FAERS Safety Report 24797142 (Version 1)
Quarter: 2025Q1

REPORT INFORMATION
  Report Type: Report from Study
  Country: US (occurrence: US)
  Receive Date: 20250101
  Receipt Date: 20250101
  Transmission Date: 20250409
  Serious: Yes (Death)
  Sender: ABBVIE
  Company Number: US-ABBVIE-6068837

PATIENT
  Age: 85 Year
  Sex: Female

DRUGS (1)
  1. HUMIRA [Suspect]
     Active Substance: ADALIMUMAB
     Indication: Rheumatoid arthritis
     Route: 058
     Dates: start: 20090616, end: 2024

REACTIONS (1)
  - Death [Fatal]

NARRATIVE: CASE EVENT DATE: 20241201
